FAERS Safety Report 14098177 (Version 1)
Quarter: 2017Q4

REPORT INFORMATION
  Report Type: Spontaneous
  Country: US (occurrence: US)
  Receive Date: 20171017
  Receipt Date: 20171017
  Transmission Date: 20180321
  Serious: No
  Sender: FDA-Public Use
  Company Number: US-TARO-2016TAR01034

PATIENT
  Age: 13 Year
  Sex: Male
  Weight: 68.27 kg

DRUGS (3)
  1. LORATADINE SYRUP (LORATADINE ORAL SOLUTION USP) 5MG/5ML [Suspect]
     Active Substance: LORATADINE
     Indication: HYPERSENSITIVITY
     Dosage: 2 TSP, 2X/DAY
     Route: 048
     Dates: start: 20161213, end: 20161213
  2. LORATADINE SYRUP (LORATADINE ORAL SOLUTION USP) 5MG/5ML [Suspect]
     Active Substance: LORATADINE
     Indication: RHINORRHOEA
  3. UNSPECIFIED MULTIVITAMIN [Concomitant]
     Dosage: UNK UNK, 1X/DAY
     Route: 048

REACTIONS (2)
  - Accidental overdose [Recovered/Resolved]
  - Somnolence [Recovered/Resolved]

NARRATIVE: CASE EVENT DATE: 20161213
